FAERS Safety Report 4647709-2 (Version None)
Quarter: 2005Q2

REPORT INFORMATION
  Report Type: 
  Country: None (occurrence: None)
  Receive Date: 20050428
  Receipt Date: 20050330
  Transmission Date: 20051028
  Serious: Yes (Hospitalization, Other)
  Sender: FDA-Public Use
  Company Number: PHBS2005CH04530

PATIENT
  Age: 67 Year
  Sex: Male

DRUGS (3)
  1. SPEDRALGIN [Suspect]
     Indication: BACK PAIN
     Dosage: 2 DF, ONCE/SINGLE
     Route: 048
  2. VOLTAREN [Suspect]
     Indication: BACK PAIN
     Dosage: 1 DF, ONCE/SINGLE
     Route: 048
  3. CHOLESTEROL- AND TRIGLYCERIDE REDUCERS [Suspect]

REACTIONS (20)
  - ACUTE CORONARY SYNDROME [None]
  - ANAPHYLACTIC REACTION [None]
  - BLOOD PRESSURE DECREASED [None]
  - CHEST PAIN [None]
  - CIRCULATORY COLLAPSE [None]
  - CORONARY ANGIOPLASTY [None]
  - CORONARY ARTERY DISEASE [None]
  - DRUG INTOLERANCE [None]
  - DYSLIPIDAEMIA [None]
  - ELECTROCARDIOGRAM ST SEGMENT DEPRESSION [None]
  - ELECTROCARDIOGRAM T WAVE INVERSION [None]
  - EXANTHEM [None]
  - HYPERTENSION [None]
  - LOSS OF CONSCIOUSNESS [None]
  - OXYGEN SATURATION DECREASED [None]
  - PRURITUS [None]
  - STENT PLACEMENT [None]
  - TRYPTASE INCREASED [None]
  - VASCULAR STENOSIS [None]
  - VISUAL DISTURBANCE [None]
